FAERS Safety Report 23261081 (Version 1)
Quarter: 2023Q4

REPORT INFORMATION
  Report Type: Spontaneous
  Country: DE (occurrence: DE)
  Receive Date: 20231205
  Receipt Date: 20231205
  Transmission Date: 20240110
  Serious: Yes (Congenital Anomaly, Other)
  Sender: FDA-Public Use
  Company Number: DE-EMBRYOTOX-202205557

PATIENT
  Age: 1 Day
  Sex: Male
  Weight: 3.17 kg

DRUGS (8)
  1. DULOXETINE [Suspect]
     Active Substance: DULOXETINE
     Indication: Depression
     Dosage: 90 MILLIGRAM, ONCE A DAY
     Route: 064
     Dates: start: 20220214, end: 20220415
  2. ZOPICLONE [Suspect]
     Active Substance: ZOPICLONE
     Indication: Depression
     Dosage: 7.5 MILLIGRAM, AS NECESSARY
     Route: 064
  3. PIPAMPERONE [Suspect]
     Active Substance: PIPAMPERONE
     Indication: Depression
     Dosage: 20 MILLIGRAM, ONCE A DAY
     Route: 064
  4. Ortoton [Concomitant]
     Indication: Back pain
     Dosage: GESTATIONAL WEEK 2/3, FOR FEW DAYS
     Route: 064
  5. PERTUSSIS VACCINE [Concomitant]
     Active Substance: PERTUSSIS VACCINE
     Indication: Immunisation
     Dosage: UNK
     Route: 064
     Dates: start: 20221011, end: 20221011
  6. VENLAFAXINE [Concomitant]
     Active Substance: VENLAFAXINE HYDROCHLORIDE
     Indication: Depression
     Dosage: 75 MILLIGRAM, ONCE A DAY ( REDUCED TO 37.5 MG/D TWO WEEKS BEFORE BIRTH)
     Route: 064
     Dates: start: 20220416, end: 20221121
  7. INSULIN NOS [Concomitant]
     Active Substance: INSULIN NOS
     Indication: Gestational diabetes
     Dosage: UNK
     Route: 065
  8. DICLOFENAC [Concomitant]
     Active Substance: DICLOFENAC
     Indication: Pain
     Dosage: GESTATIONAL WEEK 2/3, FOR FEW DAYS
     Route: 064

REACTIONS (2)
  - Anterior chamber cleavage syndrome [Not Recovered/Not Resolved]
  - Foetal exposure during pregnancy [Unknown]

NARRATIVE: CASE EVENT DATE: 20221101
